FAERS Safety Report 18558619 (Version 1)
Quarter: 2020Q4

REPORT INFORMATION
  Report Type: Spontaneous
  Country: US (occurrence: US)
  Receive Date: 20201125
  Receipt Date: 20201125
  Transmission Date: 20210114
  Serious: No
  Sender: FDA-Public Use
  Company Number: None

PATIENT
  Age: 59 Year
  Sex: Female
  Weight: 69 kg

DRUGS (5)
  1. MULTIVITAMIN [Concomitant]
     Active Substance: VITAMINS
  2. ATIVAN [Concomitant]
     Active Substance: LORAZEPAM
  3. EMLA [Concomitant]
     Active Substance: LIDOCAINE\PRILOCAINE
  4. TRABECTEDIN [Suspect]
     Active Substance: TRABECTEDIN
     Indication: PLEOMORPHIC LEIOMYOSARCOMA
     Dosage: ?          QUANTITY:510 ML MILLILITRE(S);OTHER FREQUENCY:EVERY 3 WEEKS;?
     Route: 055
     Dates: start: 20201026
  5. CBD OIL [Concomitant]
     Active Substance: CANNABIDIOL\HERBALS

REACTIONS (4)
  - Burning sensation [None]
  - Infusion related reaction [None]
  - Abdominal discomfort [None]
  - Paraesthesia [None]

NARRATIVE: CASE EVENT DATE: 20201026
